FAERS Safety Report 5281316-6 (Version None)
Quarter: 2007Q1

REPORT INFORMATION
  Report Type: 
  Country: None (occurrence: None)
  Receive Date: 20061221
  Receipt Date: 20060907
  Transmission Date: 20070707
  Serious: Yes (Other)
  Sender: FDA-Public Use
  Company Number: TPA2006A00835

PATIENT
  Age: 75 Year
  Sex: Female
  Weight: 120 kg

DRUGS (10)
  1. ACTOPLUS MET [Suspect]
     Indication: DIABETES MELLITUS NON-INSULIN-DEPENDENT
     Dosage: 15/500 MG, BID OR TID, PER ORAL
     Route: 048
     Dates: start: 20051202
  2. GLYBURIDE [Suspect]
     Indication: DIABETES MELLITUS
     Dosage: 5 MG, 2 TABS QAM + 1 TAB Q NOON, PER ORAL
     Route: 048
  3. DYAZIDE [Concomitant]
  4. PRAVACHOL [Concomitant]
  5. EVISTA [Concomitant]
  6. ATENOLOL [Concomitant]
  7. ACTONEL [Concomitant]
  8. CALCIUM (CALCIUM) (TABLETS) [Concomitant]
  9. ASPIRIN [Concomitant]
  10. ACTOS [Concomitant]

REACTIONS (6)
  - ANXIETY [None]
  - BLOOD GLUCOSE DECREASED [None]
  - DEPRESSED LEVEL OF CONSCIOUSNESS [None]
  - DRUG DISPENSING ERROR [None]
  - FEELING HOT [None]
  - MALAISE [None]
